FAERS Safety Report 21002178 (Version 1)
Quarter: 2022Q2

REPORT INFORMATION
  Report Type: Report from Study
  Country: IT (occurrence: IT)
  Receive Date: 20220624
  Receipt Date: 20220624
  Transmission Date: 20220720
  Serious: Yes (Other)
  Sender: FDA-Public Use
  Company Number: None

PATIENT
  Age: 62 Year
  Sex: Female

DRUGS (1)
  1. ATENOLOL [Suspect]
     Active Substance: ATENOLOL
     Indication: Hypertension
     Dosage: UNIT DOSE: 100 MG, FREQUENCY : 1 DAYS
     Route: 048
     Dates: start: 20150202, end: 20220521

REACTIONS (4)
  - Vomiting [Recovering/Resolving]
  - Headache [Recovering/Resolving]
  - Bradycardia [Recovering/Resolving]
  - Vertigo [Recovering/Resolving]

NARRATIVE: CASE EVENT DATE: 20220520
